FAERS Safety Report 18094084 (Version 4)
Quarter: 2020Q4

REPORT INFORMATION
  Report Type: Report from Study
  Country: US (occurrence: US)
  Receive Date: 20200730
  Receipt Date: 20201020
  Transmission Date: 20210113
  Serious: Yes (Hospitalization, Other)
  Sender: FDA-Public Use
  Company Number: US-AGIOS-2007US02049

PATIENT

DRUGS (8)
  1. TIBSOVO [Suspect]
     Active Substance: IVOSIDENIB
     Indication: CHOLANGIOCARCINOMA
     Dosage: 250 MG, 2 TABLETS (500 MG), QD
     Route: 048
     Dates: start: 202007
  2. TIBSOVO [Suspect]
     Active Substance: IVOSIDENIB
     Dosage: 250 MG, 2 TABLETS (500 MG), QD
     Route: 048
     Dates: start: 20200710, end: 20200731
  3. OMEPRAZOLE. [Concomitant]
     Active Substance: OMEPRAZOLE
     Dosage: 20 MILLIGRAM, QD
     Route: 048
  4. VIAGRA [Concomitant]
     Active Substance: SILDENAFIL CITRATE
  5. TIBSOVO [Suspect]
     Active Substance: IVOSIDENIB
     Dosage: 250 MG, 2 TABLETS (500 MG), QD
     Route: 048
     Dates: start: 20200424, end: 20200914
  6. METRONIDAZOLE. [Concomitant]
     Active Substance: METRONIDAZOLE
     Indication: ABSCESS
     Dosage: UNK
     Route: 048
     Dates: start: 20200710
  7. FLAGYL [Concomitant]
     Active Substance: METRONIDAZOLE\METRONIDAZOLE HYDROCHLORIDE
     Indication: LIVER ABSCESS
     Dosage: UNK
     Dates: start: 20200710
  8. LEVAQUIN [Concomitant]
     Active Substance: LEVOFLOXACIN
     Indication: LIVER ABSCESS
     Dosage: UNK
     Dates: start: 20200710

REACTIONS (13)
  - Bacterial infection [Unknown]
  - Feeling abnormal [Unknown]
  - Decreased appetite [Unknown]
  - Throat irritation [Unknown]
  - Chills [Unknown]
  - Jaundice [Unknown]
  - Sepsis [Unknown]
  - Abdominal pain upper [Unknown]
  - Small intestinal obstruction [Recovered/Resolved]
  - White blood cell count increased [Unknown]
  - Weight decreased [Unknown]
  - Fatigue [Not Recovered/Not Resolved]
  - Off label use [Not Recovered/Not Resolved]

NARRATIVE: CASE EVENT DATE: 20200710
